FAERS Safety Report 4551639-4 (Version None)
Quarter: 2005Q1

REPORT INFORMATION
  Report Type: 
  Country: None (occurrence: None)
  Receive Date: 20050111
  Receipt Date: 20041228
  Transmission Date: 20050727
  Serious: Yes (Hospitalization)
  Sender: FDA-Public Use
  Company Number: J081-002-001831

PATIENT
  Age: 83 Year
  Sex: Female
  Weight: 29 kg

DRUGS (8)
  1. ARICEPT [Suspect]
     Indication: DEMENTIA ALZHEIMER'S TYPE
     Dosage: 5 MG, 1 IN 1 D, ORAL
     Route: 048
     Dates: end: 20040710
  2. DIGOXIN [Suspect]
     Indication: CARDIAC DISORDER
     Dosage: 0.25 MG, 1 IN 1 D, ORAL
     Route: 048
     Dates: start: 20010101, end: 20040710
  3. SELBEX (TEPRENONE) [Concomitant]
  4. NU-LOTAN (LOSARTAN POTASSIUM) [Concomitant]
  5. NORVASC [Concomitant]
  6. BUFFERIN [Concomitant]
  7. CYSTANIN (L-CYSTEINE ETHYL ESTER, HYDROCHLORIDE) [Concomitant]
  8. HUSTAZOL (CLOPERASTINE HYDROCHLORIDE) [Concomitant]

REACTIONS (8)
  - ATRIAL FIBRILLATION [None]
  - BRADYCARDIA [None]
  - BRAIN SCAN ABNORMAL [None]
  - HYPOKALAEMIA [None]
  - LOSS OF CONSCIOUSNESS [None]
  - PROCEDURAL COMPLICATION [None]
  - SYNCOPE [None]
  - TORSADE DE POINTES [None]
